FAERS Safety Report 9421492 (Version 4)
Quarter: 2014Q2

REPORT INFORMATION
  Report Type: Spontaneous
  Country: FR (occurrence: FR)
  Receive Date: 20130726
  Receipt Date: 20140513
  Transmission Date: 20141212
  Serious: Yes (Hospitalization)
  Sender: FDA-Public Use
  Company Number: FR-BIOGENIDEC-2013BI053256

PATIENT
  Age: 58 Year
  Sex: Female

DRUGS (10)
  1. TYSABRI [Suspect]
     Indication: MULTIPLE SCLEROSIS
     Route: 042
     Dates: start: 20090128, end: 20130507
  2. SOLUMEDROL [Concomitant]
     Route: 042
     Dates: start: 2013
  3. OMEPRAZOLE [Concomitant]
  4. PROZAC [Concomitant]
  5. BACLOFEN [Concomitant]
  6. SERETIDE [Concomitant]
  7. ATARAX [Concomitant]
  8. PARACETAMOL [Concomitant]
  9. CETIRIZINE [Concomitant]
  10. LYRICA [Concomitant]

REACTIONS (1)
  - Progressive multifocal leukoencephalopathy [Not Recovered/Not Resolved]
